FAERS Safety Report 9235996 (Version 1)
Quarter: 2013Q2

REPORT INFORMATION
  Report Type: Spontaneous
  Country: JP (occurrence: None)
  Receive Date: 20130401
  Receipt Date: 20130401
  Transmission Date: 20140414
  Serious: Yes (Hospitalization)
  Sender: FDA-Public Use
  Company Number: 0237322

PATIENT
  Age: 79 Year
  Sex: Male

DRUGS (1)
  1. TACHOSIL [Suspect]
     Indication: HAEMOSTASIS
     Dates: start: 20130308

REACTIONS (1)
  - Abdominal abscess [None]
